FAERS Safety Report 17093858 (Version 1)
Quarter: 2019Q4

REPORT INFORMATION
  Report Type: Spontaneous
  Country: US (occurrence: US)
  Receive Date: 20191129
  Receipt Date: 20191129
  Transmission Date: 20200122
  Serious: No
  Sender: FDA-Public Use
  Company Number: US-TEVA-2019-US-1144341

PATIENT
  Age: 62 Year
  Sex: Female

DRUGS (1)
  1. FLUOXETINE [Suspect]
     Active Substance: FLUOXETINE HYDROCHLORIDE
     Indication: DEPRESSION
     Dates: start: 20191120

REACTIONS (5)
  - Adverse event [Unknown]
  - Fatigue [Unknown]
  - Drug ineffective [Unknown]
  - Irritability [Unknown]
  - Somnolence [Unknown]

NARRATIVE: CASE EVENT DATE: 201911
